FAERS Safety Report 17396869 (Version 2)
Quarter: 2020Q1

REPORT INFORMATION
  Report Type: Spontaneous
  Country: US (occurrence: US)
  Receive Date: 20200210
  Receipt Date: 20200225
  Transmission Date: 20200409
  Serious: No
  Sender: FDA-Public Use
  Company Number: US-PFIZER INC-2020057508

PATIENT
  Age: 10 Year
  Sex: Female

DRUGS (4)
  1. CYTOXAN [Suspect]
     Active Substance: CYCLOPHOSPHAMIDE
     Indication: LYMPHADENOPATHY
     Dosage: UNK UNK, DAILY
     Route: 048
  2. TEMSIROLIMUS. [Suspect]
     Active Substance: TEMSIROLIMUS
     Indication: LYMPHADENOPATHY
     Dosage: UNK
  3. DACTINOMYCIN [Suspect]
     Active Substance: DACTINOMYCIN
     Indication: LYMPHADENOPATHY
     Dosage: UNK
  4. VINORELBINE [Suspect]
     Active Substance: VINORELBINE TARTRATE
     Indication: LYMPHADENOPATHY
     Dosage: DAY 1 AND 8. DAY 8 GIVEN 1/26
     Route: 042

REACTIONS (3)
  - Drug interaction [Unknown]
  - Off label use [Unknown]
  - Product use in unapproved indication [Unknown]
